FAERS Safety Report 9688359 (Version 1)
Quarter: 2013Q4

REPORT INFORMATION
  Report Type: Report from Study
  Country: CO (occurrence: CO)
  Receive Date: 20131114
  Receipt Date: 20131114
  Transmission Date: 20140711
  Serious: Yes (Death)
  Sender: FDA-Public Use
  Company Number: PHHY2013CO129529

PATIENT
  Age: 66 Year
  Sex: Male

DRUGS (1)
  1. EXJADE [Suspect]
     Indication: IRON OVERLOAD
     Dosage: 500 MG, TWICE A DAY
     Route: 048
     Dates: start: 20130220, end: 20131022

REACTIONS (1)
  - Death [Fatal]
